FAERS Safety Report 13286858 (Version 6)
Quarter: 2021Q2

REPORT INFORMATION
  Report Type: Spontaneous
  Country: CA (occurrence: CA)
  Receive Date: 20170301
  Receipt Date: 20210407
  Transmission Date: 20210716
  Serious: Yes (Hospitalization, Other)
  Sender: FDA-Public Use
  Company Number: CA-ROCHE-1899556

PATIENT
  Age: 75 Year
  Sex: Female

DRUGS (138)
  1. FENTANYL. [Suspect]
     Active Substance: FENTANYL
     Indication: PRODUCT USED FOR UNKNOWN INDICATION
     Route: 065
  2. FENTANYL. [Suspect]
     Active Substance: FENTANYL
     Route: 065
  3. MYOCHRYSINE [Suspect]
     Active Substance: GOLD SODIUM THIOMALATE
     Route: 030
  4. CELEBREX [Suspect]
     Active Substance: CELECOXIB
     Indication: ARTHRITIS
     Route: 065
  5. VITAMIN B1 [Suspect]
     Active Substance: THIAMINE HYDROCHLORIDE
     Indication: PRODUCT USED FOR UNKNOWN INDICATION
     Route: 065
  6. RITUXIMAB. [Suspect]
     Active Substance: RITUXIMAB
     Indication: PRODUCT USED FOR UNKNOWN INDICATION
     Route: 041
  7. APO?LEFLUNOMIDE [Suspect]
     Active Substance: LEFLUNOMIDE
     Indication: PRODUCT USED FOR UNKNOWN INDICATION
     Route: 065
  8. ACETAMINOPHEN;OXYCODONE HYDROCHLORIDE [Concomitant]
     Active Substance: ACETAMINOPHEN\OXYCODONE HYDROCHLORIDE
     Indication: PAIN
     Route: 065
  9. LOPERAMIDE HYDROCHLORIDE. [Concomitant]
     Active Substance: LOPERAMIDE HYDROCHLORIDE
     Indication: PRODUCT USED FOR UNKNOWN INDICATION
     Route: 065
  10. D?ALPHA TOCOPHEROL [Concomitant]
     Active Substance: .ALPHA.-TOCOPHEROL, D-
     Route: 065
  11. DIPHENOXYLATE [Concomitant]
     Active Substance: DIPHENOXYLATE
     Route: 065
  12. PYRIDOXINE HYDROCHLORIDE. [Concomitant]
     Active Substance: PYRIDOXINE HYDROCHLORIDE
     Route: 065
  13. TECTA [Concomitant]
     Active Substance: PANTOPRAZOLE MAGNESIUM
     Route: 065
  14. THIAMINE MONONITRATE [Concomitant]
     Active Substance: THIAMINE MONONITRATE
     Route: 065
  15. VITAMIN D3 [Concomitant]
     Active Substance: CHOLECALCIFEROL
  16. PERFENAZINE [Concomitant]
     Active Substance: PERPHENAZINE
     Route: 048
  17. ENBREL [Suspect]
     Active Substance: ETANERCEPT
     Route: 058
  18. METHOTREXATE. [Suspect]
     Active Substance: METHOTREXATE
     Indication: RHEUMATOID ARTHRITIS
     Route: 058
  19. PLAQUENIL [Suspect]
     Active Substance: HYDROXYCHLOROQUINE SULFATE
     Indication: RHEUMATOID ARTHRITIS
     Route: 048
  20. ORENCIA [Suspect]
     Active Substance: ABATACEPT
     Indication: PRODUCT USED FOR UNKNOWN INDICATION
  21. ERGOCALCIFEROL. [Concomitant]
     Active Substance: ERGOCALCIFEROL
     Indication: PRODUCT USED FOR UNKNOWN INDICATION
     Route: 065
  22. APO?GABAPENTIN [Concomitant]
     Active Substance: GABAPENTIN
     Route: 048
  23. ASCORBIC ACID. [Concomitant]
     Active Substance: ASCORBIC ACID
     Route: 065
  24. LOPERAMIDE [Concomitant]
     Active Substance: LOPERAMIDE
     Route: 065
  25. PERPHENAZINE. [Concomitant]
     Active Substance: PERPHENAZINE
     Route: 065
  26. TECTA [Concomitant]
     Active Substance: PANTOPRAZOLE MAGNESIUM
     Route: 065
  27. VITAMIN B12 [Concomitant]
     Active Substance: CYANOCOBALAMIN
  28. PANTOPRAZOLE [Concomitant]
     Active Substance: PANTOPRAZOLE
  29. PERFENAZINE [Concomitant]
     Active Substance: PERPHENAZINE
     Indication: SLEEP DISORDER
     Route: 048
  30. RISEDRONATE SODIUM. [Concomitant]
     Active Substance: RISEDRONATE SODIUM
     Indication: PRODUCT USED FOR UNKNOWN INDICATION
     Route: 065
  31. CELECOXIB. [Suspect]
     Active Substance: CELECOXIB
     Indication: ADENOMATOUS POLYPOSIS COLI
  32. ENBREL [Suspect]
     Active Substance: ETANERCEPT
     Indication: RHEUMATOID ARTHRITIS
     Route: 058
  33. METHOTREXATE. [Suspect]
     Active Substance: METHOTREXATE
     Route: 058
  34. SULFASALAZINE. [Suspect]
     Active Substance: SULFASALAZINE
     Route: 048
  35. HYDROXYCHLOROQUINE SULFATE. [Suspect]
     Active Substance: HYDROXYCHLOROQUINE SULFATE
     Indication: RHEUMATOID ARTHRITIS
     Route: 065
  36. METHOTREXATE SODIUM. [Suspect]
     Active Substance: METHOTREXATE SODIUM
     Indication: RHEUMATOID ARTHRITIS
     Route: 058
  37. THIAMINE HYDROCHLORIDE. [Suspect]
     Active Substance: THIAMINE HYDROCHLORIDE
     Indication: PRODUCT USED FOR UNKNOWN INDICATION
     Route: 065
  38. ACETAMINOPHEN;OXYCODONE HYDROCHLORIDE [Concomitant]
     Active Substance: ACETAMINOPHEN\OXYCODONE HYDROCHLORIDE
  39. ACLASTA [Concomitant]
     Active Substance: ZOLEDRONIC ACID
     Route: 042
  40. ESOMEPRAZOLE. [Concomitant]
     Active Substance: ESOMEPRAZOLE MAGNESIUM
     Indication: PRODUCT USED FOR UNKNOWN INDICATION
     Route: 065
  41. ESOMEPRAZOLE. [Concomitant]
     Active Substance: ESOMEPRAZOLE MAGNESIUM
     Route: 065
  42. ASCORBIC ACID. [Concomitant]
     Active Substance: ASCORBIC ACID
     Route: 065
  43. DIPHENOXYLATE [Concomitant]
     Active Substance: DIPHENOXYLATE
     Route: 065
  44. DOCOSAHEXAENOIC ACID [Concomitant]
     Active Substance: DOCONEXENT
     Route: 065
  45. FERGON [Concomitant]
     Active Substance: FERROUS GLUCONATE
  46. CALCIUM [Concomitant]
     Active Substance: CALCIUM
     Indication: PRODUCT USED FOR UNKNOWN INDICATION
     Route: 065
  47. FENTANYL. [Suspect]
     Active Substance: FENTANYL
     Route: 065
  48. APO?GABAPENTIN [Suspect]
     Active Substance: GABAPENTIN
     Indication: PRODUCT USED FOR UNKNOWN INDICATION
     Route: 048
  49. ORENCIA [Suspect]
     Active Substance: ABATACEPT
     Indication: RHEUMATOID ARTHRITIS
     Dosage: THERAPY DURATION: 330.0 DAY(S)
     Route: 042
  50. OXYCONTIN [Suspect]
     Active Substance: OXYCODONE HYDROCHLORIDE
     Indication: PRODUCT USED FOR UNKNOWN INDICATION
     Route: 065
  51. SULFASALAZINE. [Suspect]
     Active Substance: SULFASALAZINE
     Indication: RHEUMATOID ARTHRITIS
     Route: 048
  52. ORENCIA [Suspect]
     Active Substance: ABATACEPT
     Indication: RHEUMATOID ARTHRITIS
     Route: 042
  53. ACTONEL [Concomitant]
     Active Substance: RISEDRONATE SODIUM
     Indication: PRODUCT USED FOR UNKNOWN INDICATION
     Route: 065
  54. DIPHENOXYLATE HYDROCHLORIDE [Concomitant]
     Active Substance: DIPHENOXYLATE HYDROCHLORIDE
     Route: 065
  55. ERGOCALCIFEROL. [Concomitant]
     Active Substance: ERGOCALCIFEROL
     Route: 065
  56. ERGOCALCIFEROL. [Concomitant]
     Active Substance: ERGOCALCIFEROL
     Route: 065
  57. NASONEX [Concomitant]
     Active Substance: MOMETASONE FUROATE
     Indication: PRODUCT USED FOR UNKNOWN INDICATION
  58. PANTOPRAZOLE MAGNESIUM [Concomitant]
     Active Substance: PANTOPRAZOLE MAGNESIUM
     Indication: PRODUCT USED FOR UNKNOWN INDICATION
     Route: 065
  59. TRAZODONE HYDROCHLORIDE. [Concomitant]
     Active Substance: TRAZODONE HYDROCHLORIDE
     Indication: PRODUCT USED FOR UNKNOWN INDICATION
     Route: 048
  60. TRAZODONE HYDROCHLORIDE. [Concomitant]
     Active Substance: TRAZODONE HYDROCHLORIDE
     Route: 048
  61. TYLENOL [Concomitant]
     Active Substance: ACETAMINOPHEN
     Indication: PRODUCT USED FOR UNKNOWN INDICATION
     Route: 048
  62. BIOTIN [Concomitant]
     Active Substance: BIOTIN
     Route: 065
  63. ESOMEPRAZOLE MAGNESIUM TRIHYDRATE [Concomitant]
     Active Substance: ESOMEPRAZOLE MAGNESIUM
     Route: 065
  64. FERGON [Concomitant]
     Active Substance: FERROUS GLUCONATE
     Route: 065
  65. LOMOTIL (CANADA) [Concomitant]
     Route: 065
  66. RIBOFLAVIN [Concomitant]
     Active Substance: RIBOFLAVIN
     Route: 065
  67. TRAZODONE [Concomitant]
     Active Substance: TRAZODONE HYDROCHLORIDE
     Route: 065
  68. PANTOPRAZOLE [Concomitant]
     Active Substance: PANTOPRAZOLE
  69. PERCOCET [Concomitant]
     Active Substance: ACETAMINOPHEN\OXYCODONE HYDROCHLORIDE
     Indication: PAIN
  70. RISEDRONATE SODIUM. [Concomitant]
     Active Substance: RISEDRONATE SODIUM
  71. OMEGA 3 [Concomitant]
     Active Substance: OMEGA-3 FATTY ACIDS
  72. ACTEMRA [Suspect]
     Active Substance: TOCILIZUMAB
     Indication: RHEUMATOID ARTHRITIS
     Route: 042
  73. OXYCONTIN [Suspect]
     Active Substance: OXYCODONE HYDROCHLORIDE
     Route: 065
  74. CELEBREX [Suspect]
     Active Substance: CELECOXIB
     Indication: RHEUMATOID ARTHRITIS
     Route: 048
  75. FENTANYL TRANSDERMAL SYSTEM [Suspect]
     Active Substance: FENTANYL
     Indication: PRODUCT USED FOR UNKNOWN INDICATION
     Route: 065
  76. DOCOSAHEXAENOIC ACID;EICOSAPENTAENOIC ACID [Suspect]
     Active Substance: DOCONEXENT\ICOSAPENT
     Indication: RHEUMATOID ARTHRITIS
     Route: 065
  77. DIPHENOXYLATE HYDROCHLORIDE [Concomitant]
     Active Substance: DIPHENOXYLATE HYDROCHLORIDE
     Indication: PRODUCT USED FOR UNKNOWN INDICATION
     Route: 065
  78. ERGOCALCIFEROL. [Concomitant]
     Active Substance: ERGOCALCIFEROL
     Route: 065
  79. ESOMEPRAZOLE. [Concomitant]
     Active Substance: ESOMEPRAZOLE MAGNESIUM
     Route: 065
  80. PREDNISONE. [Concomitant]
     Active Substance: PREDNISONE
     Indication: PRODUCT USED FOR UNKNOWN INDICATION
     Route: 065
  81. ATROPINE SULFATE;DIPHENOXYLATE HYDROCHLORIDE [Concomitant]
     Active Substance: ATROPINE SULFATE\DIPHENOXYLATE HYDROCHLORIDE
     Route: 065
  82. CHOLECALCIFEROL [Concomitant]
     Active Substance: CHOLECALCIFEROL
     Route: 065
  83. FERROUS FUMARATE [Concomitant]
     Active Substance: FERROUS FUMARATE
     Route: 065
  84. FOLIC ACID. [Concomitant]
     Active Substance: FOLIC ACID
     Route: 065
  85. NEXIUM [Concomitant]
     Active Substance: ESOMEPRAZOLE MAGNESIUM
     Route: 065
  86. NICOTINAMIDE [Concomitant]
     Active Substance: NIACINAMIDE
     Route: 065
  87. RETINOL PALMITATE [Concomitant]
     Active Substance: VITAMIN A PALMITATE
     Route: 065
  88. RISEDRONATE SODIUM. [Concomitant]
     Active Substance: RISEDRONATE SODIUM
  89. NORTRIPTYLINE HYDROCHLORIDE. [Suspect]
     Active Substance: NORTRIPTYLINE HYDROCHLORIDE
     Indication: SLEEP DISORDER
     Route: 048
  90. XELJANZ [Suspect]
     Active Substance: TOFACITINIB CITRATE
     Indication: RHEUMATOID ARTHRITIS
     Route: 048
  91. VITAMIN B?1 [Suspect]
     Active Substance: THIAMINE HYDROCHLORIDE
     Indication: PRODUCT USED FOR UNKNOWN INDICATION
     Route: 065
  92. XELJANZ [Suspect]
     Active Substance: TOFACITINIB CITRATE
     Indication: RHEUMATOID ARTHRITIS
     Route: 005
  93. OXYCODONE HYDROCHLORIDE. [Suspect]
     Active Substance: OXYCODONE HYDROCHLORIDE
     Indication: PRODUCT USED FOR UNKNOWN INDICATION
     Route: 065
  94. SALMON OIL [Suspect]
     Active Substance: FISH OIL
     Indication: RHEUMATOID ARTHRITIS
     Route: 065
  95. ACLASTA [Concomitant]
     Active Substance: ZOLEDRONIC ACID
     Indication: PRODUCT USED FOR UNKNOWN INDICATION
     Route: 042
  96. ACLASTA [Concomitant]
     Active Substance: ZOLEDRONIC ACID
     Route: 065
  97. D?ALPHA TOCOPHERYL ACETATE [Concomitant]
     Active Substance: .ALPHA.-TOCOPHEROL ACETATE, D-
     Route: 065
  98. PYRIDOXINE [Concomitant]
     Active Substance: PYRIDOXINE
     Route: 065
  99. RETINOL PALMITATE [Concomitant]
     Active Substance: VITAMIN A PALMITATE
     Route: 065
  100. RIBOFLAVIN [Concomitant]
     Active Substance: RIBOFLAVIN
     Route: 065
  101. PANTOPRAZOLE [Concomitant]
     Active Substance: PANTOPRAZOLE
  102. THIAMINE. [Concomitant]
     Active Substance: THIAMINE
  103. OXYCODONE TEREPHTHALATE [Concomitant]
     Active Substance: OXYCODONE TEREPHTHALATE
     Route: 065
  104. MYOCHRYSINE [Suspect]
     Active Substance: GOLD SODIUM THIOMALATE
     Indication: RHEUMATOID ARTHRITIS
     Route: 030
  105. HYDROXYCHLOROQUINE [Suspect]
     Active Substance: HYDROXYCHLOROQUINE
     Indication: RHEUMATOID ARTHRITIS
     Route: 065
  106. ARAVA [Suspect]
     Active Substance: LEFLUNOMIDE
     Indication: PRODUCT USED FOR UNKNOWN INDICATION
     Route: 048
  107. FENTANYL CITRATE. [Suspect]
     Active Substance: FENTANYL CITRATE
     Indication: PRODUCT USED FOR UNKNOWN INDICATION
     Route: 008
  108. NORTRIPTYLINE HYDROCHLORIDE. [Suspect]
     Active Substance: NORTRIPTYLINE HYDROCHLORIDE
     Indication: SLEEP DISORDER
     Route: 065
  109. XELJANZ [Suspect]
     Active Substance: TOFACITINIB CITRATE
     Route: 048
  110. ACLASTA [Concomitant]
     Active Substance: ZOLEDRONIC ACID
     Route: 042
  111. PREDNISONE. [Concomitant]
     Active Substance: PREDNISONE
     Route: 065
  112. TRAZODONE HYDROCHLORIDE. [Concomitant]
     Active Substance: TRAZODONE HYDROCHLORIDE
     Route: 048
  113. TYLENOL [Concomitant]
     Active Substance: ACETAMINOPHEN
     Route: 048
  114. ACETAMINOPHEN. [Concomitant]
     Active Substance: ACETAMINOPHEN
     Route: 065
  115. BIOTIN [Concomitant]
     Active Substance: BIOTIN
     Route: 065
  116. DOCOSAHEXAENOIC ACID [Concomitant]
     Active Substance: DOCONEXENT
     Indication: RHEUMATOID ARTHRITIS
     Route: 065
  117. ESOMEPRAZOLE MAGNESIUM TRIHYDRATE [Concomitant]
     Active Substance: ESOMEPRAZOLE MAGNESIUM
     Route: 065
  118. LOMOTIL (CANADA) [Concomitant]
     Indication: RHEUMATOID ARTHRITIS
     Route: 065
  119. LOMOTIL (CANADA) [Concomitant]
     Route: 065
  120. PERPHENAZINE. [Concomitant]
     Active Substance: PERPHENAZINE
     Route: 048
  121. SODIUM ASCORBATE [Concomitant]
     Active Substance: SODIUM ASCORBATE
     Route: 065
  122. PANTOPRAZOLE [Concomitant]
     Active Substance: PANTOPRAZOLE
  123. CELECOXIB. [Suspect]
     Active Substance: CELECOXIB
     Indication: ARTHRITIS
     Route: 048
  124. FENTANYL. [Suspect]
     Active Substance: FENTANYL
     Route: 065
  125. APO?GABAPENTIN [Suspect]
     Active Substance: GABAPENTIN
     Route: 065
  126. SULFASALAZINE. [Suspect]
     Active Substance: SULFASALAZINE
     Route: 048
  127. LEFLUNOMIDE. [Suspect]
     Active Substance: LEFLUNOMIDE
     Indication: PRODUCT USED FOR UNKNOWN INDICATION
     Route: 048
  128. NORTRIPTYLINE HYDROCHLORIDE. [Suspect]
     Active Substance: NORTRIPTYLINE HYDROCHLORIDE
     Indication: PRODUCT USED FOR UNKNOWN INDICATION
  129. NORTRIPTYLINE HYDROCHLORIDE. [Suspect]
     Active Substance: NORTRIPTYLINE HYDROCHLORIDE
     Indication: PRODUCT USED FOR UNKNOWN INDICATION
  130. OMEGA 3 FISH OILS [Suspect]
     Active Substance: OMEGA-3 FATTY ACIDS
     Indication: PRODUCT USED FOR UNKNOWN INDICATION
     Route: 065
  131. XELJANZ [Suspect]
     Active Substance: TOFACITINIB CITRATE
     Route: 048
  132. THIAMINE HYDROCHLORIDE. [Suspect]
     Active Substance: THIAMINE HYDROCHLORIDE
     Route: 065
  133. ABATACEPT [Suspect]
     Active Substance: ABATACEPT
     Indication: RHEUMATOID ARTHRITIS
     Route: 042
  134. HUMIRA [Suspect]
     Active Substance: ADALIMUMAB
     Indication: PRODUCT USED FOR UNKNOWN INDICATION
     Route: 058
  135. ACLASTA [Concomitant]
     Active Substance: ZOLEDRONIC ACID
     Route: 042
  136. FERROUS GLUCONATE [Concomitant]
     Active Substance: FERROUS GLUCONATE
     Indication: PRODUCT USED FOR UNKNOWN INDICATION
     Route: 065
  137. DOCOSAHEXAENOIC ACID [Concomitant]
     Active Substance: DOCONEXENT
     Route: 065
  138. THIAMINE HYDROCHLORIDE. [Concomitant]
     Active Substance: THIAMINE HYDROCHLORIDE
     Route: 065

REACTIONS (42)
  - Nausea [Unknown]
  - Osteopenia [Unknown]
  - Renal impairment [Unknown]
  - Sleep disorder [Unknown]
  - Arthralgia [Unknown]
  - Inflammation [Unknown]
  - Deafness neurosensory [Unknown]
  - Gastrointestinal disorder [Unknown]
  - Pleural fibrosis [Unknown]
  - Blood potassium increased [Unknown]
  - Osteosclerosis [Unknown]
  - Drug ineffective [Unknown]
  - Diarrhoea [Unknown]
  - Deformity [Unknown]
  - Musculoskeletal stiffness [Unknown]
  - Contraindicated product administered [Unknown]
  - Treatment failure [Unknown]
  - Cyst [Unknown]
  - Exostosis [Unknown]
  - Blood magnesium increased [Unknown]
  - Pain [Unknown]
  - Pain in extremity [Unknown]
  - Blood creatinine increased [Unknown]
  - Dry eye [Unknown]
  - Skin lesion [Unknown]
  - Arthropathy [Unknown]
  - Crohn^s disease [Unknown]
  - Mobility decreased [Unknown]
  - Myocardial infarction [Unknown]
  - Epigastric discomfort [Unknown]
  - Osteoarthritis [Unknown]
  - Presbyacusis [Unknown]
  - Drug hypersensitivity [Unknown]
  - Bone cyst [Unknown]
  - Drug intolerance [Unknown]
  - Fatigue [Unknown]
  - Infection [Unknown]
  - Hypersensitivity [Unknown]
  - Joint swelling [Unknown]
  - Rheumatoid arthritis [Unknown]
  - Pleural thickening [Unknown]
  - Therapeutic product effect decreased [Unknown]
